FAERS Safety Report 4531813-3 (Version None)
Quarter: 2004Q4

REPORT INFORMATION
  Report Type: 
  Country: None (occurrence: None)
  Receive Date: 20041220
  Receipt Date: 20041020
  Transmission Date: 20050328
  Serious: Yes (Life-Threatening, Hospitalization)
  Sender: FDA-Public Use
  Company Number: DE-MERCK-0410DEU00604

PATIENT
  Age: 69 Year
  Sex: Female

DRUGS (4)
  1. VIOXX [Suspect]
     Indication: INTERVERTEBRAL DISC DISORDER
     Route: 048
     Dates: start: 20040101, end: 20040101
  2. GINKGO BILOBA EXTRACT [Concomitant]
     Route: 065
  3. CALCIUM CITRATE AND CHOLECALCIFEROL [Concomitant]
     Route: 065
     Dates: start: 20010101
  4. NEXIUM [Concomitant]
     Route: 065
     Dates: start: 20020101

REACTIONS (7)
  - ARRHYTHMIA [None]
  - ARTHRALGIA [None]
  - CARDIAC DISORDER [None]
  - CARDIOVASCULAR DISORDER [None]
  - HYPERTENSION [None]
  - HYPERTENSIVE CRISIS [None]
  - PAIN IN EXTREMITY [None]
